FAERS Safety Report 7837331 (Version 2)
Quarter: 2014Q2

REPORT INFORMATION
  Report Type: Spontaneous
  Country: US (occurrence: US)
  Receive Date: 20110302
  Receipt Date: 20140403
  Transmission Date: 20141212
  Serious: Yes (Hospitalization)
  Sender: FDA-Public Use
  Company Number: US-SANOFI-AVENTIS-2011SA011085

PATIENT
  Age: 75 Year
  Sex: Male

DRUGS (7)
  1. PLAVIX [Suspect]
     Route: 065
     Dates: end: 201102
  2. LOVENOX [Suspect]
     Indication: THROMBOSIS
     Route: 065
     Dates: start: 201104
  3. COUMADIN [Suspect]
     Route: 065
     Dates: end: 201102
  4. LESCOL [Concomitant]
  5. ANTIHYPERTENSIVES [Concomitant]
  6. ASPIRIN [Concomitant]
  7. ZETIA [Concomitant]

REACTIONS (5)
  - Thrombosis [Unknown]
  - Pulmonary embolism [Unknown]
  - Injection site pain [Unknown]
  - Underdose [Unknown]
  - Device malfunction [Unknown]
